FAERS Safety Report 13020301 (Version 1)
Quarter: 2016Q4

REPORT INFORMATION
  Report Type: Spontaneous
  Country: US (occurrence: US)
  Receive Date: 20161212
  Receipt Date: 20161212
  Transmission Date: 20170207
  Serious: Yes (Life-Threatening, Hospitalization)
  Sender: FDA-Public Use
  Company Number: US-MEDICURE INC.-1060708

PATIENT
  Age: 69 Year
  Sex: Female
  Weight: 79.8 kg

DRUGS (10)
  1. AGGRASTAT [Suspect]
     Active Substance: TIROFIBAN HYDROCHLORIDE
     Indication: ANTIPLATELET THERAPY
     Route: 040
  2. HEPARIN [Concomitant]
     Active Substance: HEPARIN SODIUM
     Route: 040
  3. AGGRASTAT [Suspect]
     Active Substance: TIROFIBAN HYDROCHLORIDE
     Route: 041
  4. DIPRIVAN [Concomitant]
     Active Substance: PROPOFOL
     Route: 041
  5. NEO-SYNEPHRINE [Concomitant]
     Active Substance: PHENYLEPHRINE HYDROCHLORIDE
  6. HEPARIN [Concomitant]
     Active Substance: HEPARIN SODIUM
     Route: 041
  7. SUCCINYLCHOLINE CHLORIDE. [Concomitant]
     Active Substance: SUCCINYLCHOLINE CHLORIDE
  8. INTEGRILIN [Concomitant]
     Active Substance: EPTIFIBATIDE
     Route: 040
  9. ETOMIDATE. [Concomitant]
     Active Substance: ETOMIDATE
  10. ATROPINE. [Concomitant]
     Active Substance: ATROPINE

REACTIONS (3)
  - Cardiac arrest [Recovered/Resolved]
  - Intracardiac thrombus [Recovered/Resolved]
  - Procedural hypotension [Recovered/Resolved]
